FAERS Safety Report 8464270-5 (Version None)
Quarter: 2012Q2

REPORT INFORMATION
  Report Type: 
  Country: None (occurrence: None)
  Receive Date: 20120625
  Receipt Date: 20120618
  Transmission Date: 20120825
  Serious: Yes (Hospitalization, Other)
  Sender: FDA-Public Use
  Company Number: US-PFIZER INC-2012092797

PATIENT
  Sex: Female
  Weight: 79.365 kg

DRUGS (10)
  1. ULTRAM [Concomitant]
     Dosage: 50 MG, 2X/DAY
     Route: 048
  2. ALBUTEROL [Concomitant]
     Dosage: 2 PUFFS EVER 6 HOURS AS NEEDED
  3. AMITRIPTYLINE [Concomitant]
     Dosage: 1 TABLET (50 MG) EVERY DAY AT BEDTIME
     Route: 048
  4. XANAX [Concomitant]
     Dosage: 0.25 MG, 3X/DAY
     Route: 048
  5. PRISTIQ [Suspect]
     Indication: FIBROMYALGIA
     Dosage: 50 MG, 1X/DAY
     Route: 048
     Dates: start: 20110101
  6. SYNTHROID [Concomitant]
     Dosage: 125 UG, 1X/DAY
     Route: 048
  7. SYMBICORT [Concomitant]
     Indication: ASTHMA
     Dosage: 2 PUFFS TWO TIMES EVERY DAY IN THE MORNING AND EVENING
  8. ZYRTEC [Concomitant]
     Dosage: 10 MG, 1X/DAY
     Route: 048
  9. AMITRIPTYLINE [Concomitant]
     Dosage: 30 MG, 1X/DAY (10 MG 3 TABS, HS)
     Route: 048
  10. OMEPRAZOLE [Concomitant]
     Dosage: 1 CAPSULE (20 MG) EVERY DAY BEFORE A MEAL
     Route: 048

REACTIONS (3)
  - GASTROENTERITIS NOROVIRUS [None]
  - RENAL FAILURE [None]
  - DEHYDRATION [None]
